FAERS Safety Report 10035985 (Version 1)
Quarter: 2014Q1

REPORT INFORMATION
  Report Type: Report from Study
  Country: US (occurrence: US)
  Receive Date: 20140325
  Receipt Date: 20140325
  Transmission Date: 20141002
  Serious: Yes (Other)
  Sender: FDA-Public Use
  Company Number: US-ABBVIE-14P-163-1213613-00

PATIENT
  Sex: Female
  Weight: 106.69 kg

DRUGS (6)
  1. HUMIRA [Suspect]
     Indication: PSORIATIC ARTHROPATHY
     Dates: start: 2007, end: 201209
  2. HUMIRA [Suspect]
     Dates: start: 201403
  3. HCTZ [Concomitant]
     Indication: HYPERTENSION
  4. CELEBREX [Concomitant]
     Indication: ARTHRITIS
  5. TRAVATAN Z [Concomitant]
     Indication: GLAUCOMA
  6. PRAVACHOL [Concomitant]
     Indication: BLOOD CHOLESTEROL INCREASED

REACTIONS (8)
  - Retroperitoneal mass [Recovered/Resolved]
  - Fibrosis [Recovered/Resolved]
  - Excessive granulation tissue [Recovered/Resolved]
  - Malaise [Recovered/Resolved]
  - Tendon disorder [Not Recovered/Not Resolved]
  - Arthritis [Not Recovered/Not Resolved]
  - Pyrexia [Recovered/Resolved]
  - Infection [Recovered/Resolved]
